FAERS Safety Report 19278969 (Version 2)
Quarter: 2021Q2

REPORT INFORMATION
  Report Type: Spontaneous
  Country: HR (occurrence: HR)
  Receive Date: 20210520
  Receipt Date: 20210601
  Transmission Date: 20210717
  Serious: Yes (Other)
  Sender: FDA-Public Use
  Company Number: HR-SA-2021SA165682

PATIENT
  Age: 50 Year
  Sex: Male

DRUGS (2)
  1. OMNIC OCA [Suspect]
     Active Substance: TAMSULOSIN HYDROCHLORIDE
     Indication: PRODUCT USED FOR UNKNOWN INDICATION
     Dosage: UNK UNK, UNKNOWN FREQ.
     Route: 065
  2. OMNIC OCA [Suspect]
     Active Substance: TAMSULOSIN HYDROCHLORIDE
     Dosage: UNK UNK, UNKNOWN FREQ.
     Route: 065

REACTIONS (2)
  - Pyrexia [Recovered/Resolved]
  - Product dispensing error [Unknown]
